FAERS Safety Report 5336574-6 (Version None)
Quarter: 2007Q2

REPORT INFORMATION
  Report Type: 
  Country: None (occurrence: None)
  Receive Date: 20070524
  Receipt Date: 20070511
  Transmission Date: 20071010
  Serious: Yes (Hospitalization, Other)
  Sender: FDA-Public Use
  Company Number: PAR_1424_2007

PATIENT
  Age: 8 Year
  Sex: Male

DRUGS (2)
  1. IBUPROFEN [Suspect]
     Indication: VIRAEMIA
     Dosage: 600 MG ORAL
     Route: 048
  2. PARACETAMOL [Concomitant]

REACTIONS (17)
  - ABDOMINAL PAIN [None]
  - ABDOMINAL RIGIDITY [None]
  - ANURIA [None]
  - APPENDICECTOMY [None]
  - BODY TEMPERATURE INCREASED [None]
  - DYSPNOEA [None]
  - HAEMATURIA [None]
  - LUNG CONSOLIDATION [None]
  - MALAISE [None]
  - MUSCULOSKELETAL STIFFNESS [None]
  - OEDEMA PERIPHERAL [None]
  - RASH MACULAR [None]
  - RENAL PAPILLARY NECROSIS [None]
  - SOMNOLENCE [None]
  - ULTRASOUND SCAN ABNORMAL [None]
  - URETERIC OBSTRUCTION [None]
  - VOMITING [None]
